FAERS Safety Report 15628219 (Version 1)
Quarter: 2018Q4

REPORT INFORMATION
  Report Type: Spontaneous
  Country: US (occurrence: US)
  Receive Date: 20181116
  Receipt Date: 20181116
  Transmission Date: 20190205
  Serious: No
  Sender: FDA-Public Use
  Company Number: US-PFIZER INC-2018472228

PATIENT
  Age: 58 Year
  Sex: Female
  Weight: 68.4 kg

DRUGS (1)
  1. DETROL [Suspect]
     Active Substance: TOLTERODINE TARTRATE
     Indication: URINARY INCONTINENCE
     Dosage: 5 MG, 2X/DAY

REACTIONS (2)
  - Product use issue [Unknown]
  - Lip dry [Unknown]
